FAERS Safety Report 11191759 (Version 2)
Quarter: 2016Q1

REPORT INFORMATION
  Report Type: Spontaneous
  Country: US (occurrence: US)
  Receive Date: 20150616
  Receipt Date: 20160317
  Transmission Date: 20160525
  Serious: No
  Sender: FDA-Public Use
  Company Number: US-ELI_LILLY_AND_COMPANY-US201505006745

PATIENT
  Age: 86 Year
  Sex: Female

DRUGS (2)
  1. ADCIRCA [Suspect]
     Active Substance: TADALAFIL
     Indication: PULMONARY HYPERTENSION
     Dosage: 20 MG, BID
     Route: 048
     Dates: start: 20150505
  2. ADCIRCA [Suspect]
     Active Substance: TADALAFIL
     Dosage: UNK, UNKNOWN
     Route: 065

REACTIONS (5)
  - Headache [Unknown]
  - Peripheral swelling [Unknown]
  - Pain in extremity [Unknown]
  - Drug prescribing error [Unknown]
  - Somnolence [Unknown]

NARRATIVE: CASE EVENT DATE: 201505
